FAERS Safety Report 14817307 (Version 1)
Quarter: 2018Q2

REPORT INFORMATION
  Report Type: Spontaneous
  Country: FR (occurrence: FR)
  Receive Date: 20180426
  Receipt Date: 20180426
  Transmission Date: 20180711
  Serious: Yes (Hospitalization, Other)
  Sender: FDA-Public Use
  Company Number: FR-009507513-1712FRA013279

PATIENT
  Age: 83 Year
  Sex: Female
  Weight: 60 kg

DRUGS (8)
  1. DEXAMETHASONE. [Concomitant]
     Active Substance: DEXAMETHASONE
     Indication: PROPHYLAXIS OF NAUSEA AND VOMITING
     Route: 042
     Dates: start: 20170206
  2. ULTIVA [Suspect]
     Active Substance: REMIFENTANIL HYDROCHLORIDE
     Indication: GENERAL ANAESTHESIA
     Dosage: 150 MICROGRAM, UNK
     Route: 042
     Dates: start: 20170206
  3. ESMERON [Suspect]
     Active Substance: ROCURONIUM BROMIDE
     Indication: ENDOTRACHEAL INTUBATION
     Dosage: 35 MG,UNK
     Route: 042
     Dates: start: 20170206, end: 20170206
  4. PROPOFOL. [Suspect]
     Active Substance: PROPOFOL
     Indication: GENERAL ANAESTHESIA
     Dosage: 150 MG, UNK; FORMULATION: EMULSION
     Route: 042
     Dates: start: 20170206
  5. DESFLURANE. [Concomitant]
     Active Substance: DESFLURANE
     Indication: PRODUCT USED FOR UNKNOWN INDICATION
     Dosage: 3% INHALATION, AS HYPNOTIC
     Dates: start: 20170206
  6. CEFAZOLIN [Suspect]
     Active Substance: CEFAZOLIN
     Indication: PROPHYLAXIS
     Dosage: 2 G, UNK
     Route: 042
     Dates: start: 20170206
  7. KETAMINE [Concomitant]
     Active Substance: KETAMINE
     Indication: PRODUCT USED FOR UNKNOWN INDICATION
     Dosage: 20 MG, UNK
     Route: 042
     Dates: start: 20170206
  8. PROPOFOL. [Suspect]
     Active Substance: PROPOFOL
     Dosage: 150 MG, UNK; FORMULATION: EMULSION
     Route: 042

REACTIONS (5)
  - Sinus tachycardia [Recovering/Resolving]
  - Blood pressure decreased [Recovering/Resolving]
  - Anaphylactic shock [Recovering/Resolving]
  - Circumoral oedema [Recovered/Resolved]
  - Tongue oedema [Recovered/Resolved]

NARRATIVE: CASE EVENT DATE: 20170206
